FAERS Safety Report 8337075-3 (Version None)
Quarter: 2012Q2

REPORT INFORMATION
  Report Type: 
  Country: None (occurrence: None)
  Receive Date: 20120504
  Receipt Date: 20120425
  Transmission Date: 20120825
  Serious: Yes (Other)
  Sender: FDA-Public Use
  Company Number: IT-VALEANT-2012VX001944

PATIENT

DRUGS (2)
  1. SORAFENIB [Suspect]
     Route: 042
  2. FLUOROURACIL [Suspect]
     Dosage: DOSE UNIT:200
     Route: 042

REACTIONS (1)
  - ATRIAL FIBRILLATION [None]
